FAERS Safety Report 5179345-6 (Version None)
Quarter: 2006Q4

REPORT INFORMATION
  Report Type: 
  Country: None (occurrence: None)
  Receive Date: 20061219
  Receipt Date: 20061214
  Transmission Date: 20070319
  Serious: Yes (Other)
  Sender: FDA-Public Use
  Company Number: CH-GLAXOSMITHKLINE-B0450970A

PATIENT
  Age: 29 Year
  Sex: Female

DRUGS (3)
  1. DEROXAT [Suspect]
     Indication: DEPRESSION
     Dosage: 20MG PER DAY
     Route: 048
     Dates: start: 20060601
  2. TRAMADOL HCL [Suspect]
     Indication: MYALGIA
     Dosage: 100MG TWICE PER DAY
     Route: 048
     Dates: start: 20061031
  3. ABILIFY [Suspect]
     Indication: PERSONALITY DISORDER
     Dosage: 5MG TWICE PER DAY
     Route: 048
     Dates: start: 20061031

REACTIONS (1)
  - LOSS OF CONSCIOUSNESS [None]
